FAERS Safety Report 9257896 (Version 1)
Quarter: 2013Q2

REPORT INFORMATION
  Report Type: Spontaneous
  Country: US (occurrence: None)
  Receive Date: 20130424
  Receipt Date: 20130424
  Transmission Date: 20140414
  Serious: Yes (Life-Threatening, Other)
  Sender: FDA-Public Use
  Company Number: None

PATIENT
  Age: 59 Year
  Sex: Male
  Weight: 79.38 kg

DRUGS (1)
  1. HYDROCODONE BIT/APAP [Suspect]
     Indication: PAIN
     Dosage: AS NEEDED FOR PAIN 2 TSP 10 ML PER EVERY 6 HOURS PO
     Route: 048
     Dates: start: 20130318, end: 20130325

REACTIONS (4)
  - Choking [None]
  - Throat tightness [None]
  - Fear [None]
  - Respiratory disorder [None]
